FAERS Safety Report 24258214 (Version 1)
Quarter: 2024Q3

REPORT INFORMATION
  Report Type: Spontaneous
  Country: US (occurrence: None)
  Receive Date: 20240827
  Receipt Date: 20240827
  Transmission Date: 20241016
  Serious: Yes (Hospitalization)
  Sender: Public
  Company Number: None

PATIENT
  Age: 64 Year
  Sex: Female

DRUGS (1)
  1. KISQALI [Suspect]
     Active Substance: RIBOCICLIB
     Indication: Breast cancer female
     Dosage: OTHER FREQUENCY : DAILY FOR 21 DAYS,THEN 7 DAYS OFF;?

REACTIONS (5)
  - Consciousness fluctuating [None]
  - Myocardial infarction [None]
  - Therapy interrupted [None]
  - Urinary tract infection [None]
  - Hypotension [None]
